FAERS Safety Report 9673510 (Version 3)
Quarter: 2016Q1

REPORT INFORMATION
  Report Type: Spontaneous
  Country: US (occurrence: US)
  Receive Date: 20131106
  Receipt Date: 20160210
  Transmission Date: 20160526
  Serious: Yes (Other)
  Sender: FDA-Public Use
  Company Number: US-AMGEN-USASP2013074499

PATIENT
  Age: 68 Year
  Sex: Female
  Weight: 70.3 kg

DRUGS (42)
  1. SIMPONI ARIA [Suspect]
     Active Substance: GOLIMUMAB
     Indication: PRODUCT USED FOR UNKNOWN INDICATION
     Route: 065
  2. TAMIFLU [Concomitant]
     Active Substance: OSELTAMIVIR PHOSPHATE
     Dosage: UNK
  3. MVI                                /07504101/ [Concomitant]
     Dosage: UNK
  4. SINGULAIR [Concomitant]
     Active Substance: MONTELUKAST SODIUM
     Dosage: UNK
  5. ADVAIR HFA [Concomitant]
     Active Substance: FLUTICASONE PROPIONATE\SALMETEROL XINAFOATE
     Dosage: UNK
  6. FOLIC ACID. [Concomitant]
     Active Substance: FOLIC ACID
     Dosage: UNK
  7. REFRESH                            /00007001/ [Concomitant]
     Dosage: UNK
  8. ALBUTEROL                          /00139501/ [Concomitant]
     Active Substance: ALBUTEROL
     Dosage: UNK
  9. VITAMIN D                          /00107901/ [Concomitant]
     Active Substance: ERGOCALCIFEROL
     Dosage: UNK
  10. SYSTANE (HYPROMELLOSE 2910 (4000 MPA.S)) [Concomitant]
     Active Substance: HYPROMELLOSE 2910 (4000 MPA.S)
     Dosage: UNK
  11. PROTOPIC [Concomitant]
     Active Substance: TACROLIMUS
  12. RETIN-A [Concomitant]
     Active Substance: TRETINOIN
  13. FLU VACCINE VII [Concomitant]
     Active Substance: INFLUENZA VIRUS VACCINE
     Dosage: UNK
     Dates: start: 20140214
  14. SYNTHROID [Concomitant]
     Active Substance: LEVOTHYROXINE SODIUM
     Dosage: UNK
  15. VICODIN [Concomitant]
     Active Substance: ACETAMINOPHEN\HYDROCODONE BITARTRATE
     Dosage: UNK
  16. ZANAFLEX [Concomitant]
     Active Substance: TIZANIDINE HYDROCHLORIDE
     Dosage: 2 MG, UNK
  17. ANTIVERT                           /00007101/ [Suspect]
     Active Substance: MECLIZINE MONOHYDROCHLORIDE\NIACIN
     Indication: PRODUCT USED FOR UNKNOWN INDICATION
     Dosage: UNK
     Route: 065
  18. FLEXERIL [Concomitant]
     Active Substance: CYCLOBENZAPRINE HYDROCHLORIDE
     Dosage: UNK
  19. DIAMODE [Concomitant]
     Dosage: 2 MG, UNK
  20. MOBIC [Concomitant]
     Active Substance: MELOXICAM
     Dosage: 7.5 MG, UNK
  21. TYLENOL [Concomitant]
     Active Substance: ACETAMINOPHEN
     Dosage: UNK
  22. NASOCORT [Concomitant]
     Active Substance: BUDESONIDE
     Dosage: UNK
  23. TAZACT                             /01173601/ [Concomitant]
     Dosage: UNK
  24. RESTASIS [Concomitant]
     Active Substance: CYCLOSPORINE
     Dosage: UNK
  25. CELEXA [Concomitant]
     Active Substance: CITALOPRAM HYDROBROMIDE
     Dosage: UNK
  26. BACTROBAN [Concomitant]
     Active Substance: MUPIROCIN\MUPIROCIN CALCIUM
  27. GEODON [Suspect]
     Active Substance: ZIPRASIDONE HYDROCHLORIDE\ZIPRASIDONE MESYLATE
     Indication: PRODUCT USED FOR UNKNOWN INDICATION
     Route: 065
  28. ZOLOFT [Concomitant]
     Active Substance: SERTRALINE HYDROCHLORIDE
     Dosage: UNK
  29. FOSAMAX [Concomitant]
     Active Substance: ALENDRONATE SODIUM
     Dosage: UNK
  30. LAMICTAL [Concomitant]
     Active Substance: LAMOTRIGINE
     Dosage: 150 MG, UNK
  31. ZOFRAN [Concomitant]
     Active Substance: ONDANSETRON HYDROCHLORIDE
     Dosage: 4 MG, UNK
  32. PNEUMOCOCCAL VACCINE POLYVALENT NOS [Concomitant]
     Active Substance: PNEUMOCOCCAL VACCINE POLYVALENT
     Dosage: UNK
     Dates: start: 20141114
  33. XANAX [Suspect]
     Active Substance: ALPRAZOLAM
     Indication: PRODUCT USED FOR UNKNOWN INDICATION
     Dosage: UNK
     Route: 065
  34. LYRICA [Suspect]
     Active Substance: PREGABALIN
     Indication: PRODUCT USED FOR UNKNOWN INDICATION
     Dosage: 100 MG, UNK
     Route: 065
  35. ZYRTEC [Suspect]
     Active Substance: CETIRIZINE HYDROCHLORIDE
     Indication: PRODUCT USED FOR UNKNOWN INDICATION
     Dosage: UNK
     Route: 065
  36. PREVACID [Concomitant]
     Active Substance: LANSOPRAZOLE
     Dosage: UNK
  37. PHENERGAN [Concomitant]
     Active Substance: PROMETHAZINE HYDROCHLORIDE
     Dosage: UNK
  38. ENBREL [Suspect]
     Active Substance: ETANERCEPT
     Indication: PRODUCT USED FOR UNKNOWN INDICATION
     Dosage: UNK
     Route: 065
  39. ACTEMRA [Concomitant]
     Active Substance: TOCILIZUMAB
     Dosage: UNK
  40. ISOPTO TEARS                       /00445101/ [Concomitant]
     Dosage: UNK
  41. NEXIUM [Concomitant]
     Active Substance: ESOMEPRAZOLE MAGNESIUM
     Dosage: 40 UNK, UNK
  42. RITUXAN [Concomitant]
     Active Substance: RITUXIMAB

REACTIONS (43)
  - Osteoarthritis [Unknown]
  - Skin disorder [Unknown]
  - Dysphagia [Unknown]
  - Joint swelling [Unknown]
  - Hypoaesthesia [Unknown]
  - Sjogren^s syndrome [Unknown]
  - Arthritis infective [Unknown]
  - Drug hypersensitivity [Unknown]
  - Skin warm [Unknown]
  - Ear pain [Unknown]
  - Rhinorrhoea [Unknown]
  - Sneezing [Unknown]
  - Visual impairment [Unknown]
  - Arthralgia [Unknown]
  - Musculoskeletal stiffness [Unknown]
  - Asthenia [Unknown]
  - Fatigue [Unknown]
  - Photophobia [Unknown]
  - Wheezing [Unknown]
  - Headache [Unknown]
  - Diarrhoea [Unknown]
  - Rheumatoid arthritis [Unknown]
  - Dry skin [Unknown]
  - Erythema [Unknown]
  - Appetite disorder [Unknown]
  - Pain [Unknown]
  - Abdominal pain [Unknown]
  - Myalgia [Unknown]
  - Dizziness [Unknown]
  - Contusion [Unknown]
  - Dysphoria [Unknown]
  - Tenderness [Unknown]
  - Chills [Unknown]
  - Haemorrhagic diathesis [Unknown]
  - Oedema [Unknown]
  - Pruritus [Unknown]
  - Interstitial lung disease [Unknown]
  - Oral pain [Unknown]
  - Dyspnoea [Unknown]
  - Constipation [Unknown]
  - Back pain [Unknown]
  - Gait disturbance [Unknown]
  - Neck pain [Unknown]
